FAERS Safety Report 19958828 (Version 1)
Quarter: 2021Q4

REPORT INFORMATION
  Report Type: Spontaneous
  Country: CN (occurrence: CN)
  Receive Date: 20211015
  Receipt Date: 20211015
  Transmission Date: 20220303
  Serious: Yes (Hospitalization, Other)
  Sender: FDA-Public Use
  Company Number: CN-PFIZER INC-202101318200

PATIENT
  Age: 36 Year
  Sex: Female
  Weight: 45 kg

DRUGS (5)
  1. XELJANZ [Suspect]
     Active Substance: TOFACITINIB CITRATE
     Indication: Rheumatoid arthritis
     Dosage: 5.000 MG, 2X/DAY
     Route: 048
     Dates: start: 20210402, end: 20210614
  2. MEDROL [Suspect]
     Active Substance: METHYLPREDNISOLONE
     Indication: Rheumatoid arthritis
     Dosage: 4.000 MG, 1X/DAY
     Route: 048
     Dates: start: 20210402, end: 20210614
  3. HERBALS [Suspect]
     Active Substance: HERBALS
     Indication: Rheumatoid arthritis
     Dosage: 2.000 PILLS, 3X/DAY
     Route: 048
     Dates: start: 20210426, end: 20210614
  4. HYDROCHLOROTHIAZIDE [Concomitant]
     Active Substance: HYDROCHLOROTHIAZIDE
     Indication: Swelling
     Dosage: 12.500 MG, 1X/DAY
     Route: 048
     Dates: start: 20210426, end: 20210614
  5. RABEPRAZOLE SODIUM [Concomitant]
     Active Substance: RABEPRAZOLE SODIUM
     Indication: Prophylaxis
     Dosage: 20.000 DROP, 1X/DAY
     Route: 048
     Dates: start: 20210426, end: 20210614

REACTIONS (1)
  - Gastrointestinal haemorrhage [Recovering/Resolving]

NARRATIVE: CASE EVENT DATE: 20210614
